FAERS Safety Report 4744008-5 (Version None)
Quarter: 2005Q3

REPORT INFORMATION
  Report Type: 
  Country: None (occurrence: None)
  Receive Date: 20050809
  Receipt Date: 20050728
  Transmission Date: 20060218
  Serious: Yes (Other)
  Sender: FDA-Public Use
  Company Number: 2005093657

PATIENT
  Age: 42 Year
  Sex: Male

DRUGS (3)
  1. VIAGRA [Suspect]
     Indication: ILL-DEFINED DISORDER
     Dosage: 100 MG AS NECESSARY ORAL
     Route: 048
     Dates: start: 20050430, end: 20050510
  2. AMARYL [Concomitant]
  3. MICARDIS [Concomitant]

REACTIONS (7)
  - BLOOD GLUCOSE INCREASED [None]
  - BLOOD PRESSURE INCREASED [None]
  - DIABETES MELLITUS INADEQUATE CONTROL [None]
  - DRUG DOSE OMISSION [None]
  - RETINAL VEIN OCCLUSION [None]
  - STRESS [None]
  - VISUAL DISTURBANCE [None]
